FAERS Safety Report 16851010 (Version 1)
Quarter: 2019Q3

REPORT INFORMATION
  Report Type: Spontaneous
  Country: US (occurrence: US)
  Receive Date: 20190925
  Receipt Date: 20190925
  Transmission Date: 20191005
  Serious: Yes (Other)
  Sender: FDA-Public Use
  Company Number: US-PFIZER INC-2019388023

PATIENT
  Age: 62 Year

DRUGS (1)
  1. LYRICA [Suspect]
     Active Substance: PREGABALIN
     Indication: NEUROPATHY PERIPHERAL
     Dosage: UNK

REACTIONS (10)
  - Speech disorder [Unknown]
  - Back pain [Unknown]
  - Pain in extremity [Unknown]
  - Dizziness [Unknown]
  - Gait disturbance [Unknown]
  - Intentional product use issue [Unknown]
  - Polyneuropathy alcoholic [Unknown]
  - Limb discomfort [Unknown]
  - Paraesthesia [Unknown]
  - Withdrawal syndrome [Unknown]
